FAERS Safety Report 6078434-1 (Version None)
Quarter: 2009Q1

REPORT INFORMATION
  Report Type: 
  Country: None (occurrence: None)
  Receive Date: 20090212
  Receipt Date: 20090128
  Transmission Date: 20090719
  Serious: Yes (Hospitalization)
  Sender: FDA-Public Use
  Company Number: TRP_06062_2009

PATIENT
  Age: 57 Year
  Sex: Male

DRUGS (2)
  1. RIBAVIRIN [Suspect]
     Indication: HEPATITIS C
     Dosage: 600 MG BID ORAL
     Route: 048
     Dates: start: 20061201
  2. PEGINTERFERON ALFA-2B [Suspect]
     Indication: HEPATITIS C
     Dosage: 150 MG 1X/WEEK SUBCUTANEOUS
     Route: 058
     Dates: start: 20061201

REACTIONS (21)
  - AUTONOMIC NERVOUS SYSTEM IMBALANCE [None]
  - DEAFNESS NEUROSENSORY [None]
  - DIARRHOEA [None]
  - HAEMOLYTIC ANAEMIA [None]
  - HAIR DISORDER [None]
  - HEART RATE DECREASED [None]
  - HYPERTENSION [None]
  - HYPOACUSIS [None]
  - HYPOKALAEMIA [None]
  - HYPOPHAGIA [None]
  - MOBILITY DECREASED [None]
  - NAUSEA [None]
  - ORTHOSTATIC HYPOTENSION [None]
  - PRESYNCOPE [None]
  - RADICULOPATHY [None]
  - SACCADIC EYE MOVEMENT [None]
  - SENSORY DISTURBANCE [None]
  - THERAPEUTIC RESPONSE DECREASED [None]
  - TINNITUS [None]
  - VERTIGO [None]
  - VOMITING [None]
